FAERS Safety Report 15936841 (Version 2)
Quarter: 2019Q1

REPORT INFORMATION
  Report Type: Spontaneous
  Country: CA (occurrence: CA)
  Receive Date: 20190208
  Receipt Date: 20190301
  Transmission Date: 20190417
  Serious: Yes (Death, Life-Threatening, Hospitalization, Disabling, Other)
  Sender: FDA-Public Use
  Company Number: CA-SA-2019SA035459

PATIENT
  Age: 75 Year
  Sex: Male
  Weight: 70 kg

DRUGS (12)
  1. RIFAXIMIN. [Concomitant]
     Active Substance: RIFAXIMIN
     Indication: HEPATIC CIRRHOSIS
     Dosage: 550 MG, QD
     Dates: start: 20180121
  2. OCTREOTIDE. [Concomitant]
     Active Substance: OCTREOTIDE
     Indication: HEPATIC CIRRHOSIS
     Dosage: 100 UG, TID
     Route: 058
     Dates: start: 20190118
  3. LEVOFLOXACIN. [Concomitant]
     Active Substance: LEVOFLOXACIN
     Dosage: 750 MG, QD
     Route: 042
  4. MAXERAN [Concomitant]
     Active Substance: METOCLOPRAMIDE HYDROCHLORIDE
     Dosage: 5 MG, TID
  5. RIFADIN [Suspect]
     Active Substance: RIFAMPIN
     Dosage: 600 MG, QD
     Route: 042
     Dates: start: 20190121, end: 20190123
  6. HALDOL [Concomitant]
     Active Substance: HALOPERIDOL
     Dosage: 1 TO 2 MG, Q1H, PRN
  7. PYRAZINAMIDE. [Concomitant]
     Active Substance: PYRAZINAMIDE
     Indication: TUBERCULOSIS
     Dosage: 1000 MG, QD
  8. PANTOPRAZOLE [Concomitant]
     Active Substance: PANTOPRAZOLE
     Dosage: 40 MG, QD
  9. ASA [Concomitant]
     Active Substance: ASPIRIN
     Dosage: 81 MG, QD
  10. RIFADIN [Suspect]
     Active Substance: RIFAMPIN
     Indication: TUBERCULOSIS
     Dosage: 600 MG, QD
     Route: 048
     Dates: start: 20181214
  11. ISONIAZID. [Concomitant]
     Active Substance: ISONIAZID
     Indication: TUBERCULOSIS
     Dosage: 300 MG, QD
     Route: 042
     Dates: start: 20181214, end: 20190129
  12. NADOLOL. [Concomitant]
     Active Substance: NADOLOL
     Dosage: 20 MG, QD

REACTIONS (7)
  - Hepatotoxicity [Not Recovered/Not Resolved]
  - Delirium [Unknown]
  - Multiple organ dysfunction syndrome [Fatal]
  - Sepsis [Unknown]
  - Septic shock [Unknown]
  - Acute kidney injury [Unknown]
  - Cardiac arrest [Unknown]

NARRATIVE: CASE EVENT DATE: 20181214
